FAERS Safety Report 11639513 (Version 1)
Quarter: 2015Q4

REPORT INFORMATION
  Report Type: Spontaneous
  Country: US (occurrence: None)
  Receive Date: 20151015
  Receipt Date: 20151015
  Transmission Date: 20160304
  Serious: Yes (Hospitalization)
  Sender: FDA-Public Use
  Company Number: 1713747-2015-999384

PATIENT
  Age: 71 Year
  Sex: Male
  Weight: 75.9 kg

DRUGS (10)
  1. DOXAZOSIN [Concomitant]
     Active Substance: DOXAZOSIN\DOXAZOSIN MESYLATE
  2. LIBERTY CYCLER CASSETTE [Concomitant]
     Active Substance: DEVICE
  3. CILOSTAZOL. [Concomitant]
     Active Substance: CILOSTAZOL
  4. COLCHICINE. [Concomitant]
     Active Substance: COLCHICINE
  5. DELFLEX [Suspect]
     Active Substance: CALCIUM CHLORIDE\DEXTROSE MONOHYDRATE\MAGNESIUM CHLORIDE\SODIUM CHLORIDE\SODIUM LACTATE
     Indication: CHRONIC KIDNEY DISEASE
     Route: 033
  6. EPOGEN (EPOETIN ALPHA) [Concomitant]
  7. ALLOPURINOL. [Concomitant]
     Active Substance: ALLOPURINOL
  8. ASPIRIN. [Concomitant]
     Active Substance: ASPIRIN
  9. LIBERTY CYCLER [Concomitant]
     Active Substance: DEVICE
  10. ATORVASTATIN [Concomitant]
     Active Substance: ATORVASTATIN

REACTIONS (5)
  - Pneumonia [None]
  - Device issue [None]
  - Atrial fibrillation [None]
  - Peritoneal dialysis complication [None]
  - Fluid overload [None]

NARRATIVE: CASE EVENT DATE: 20150918
